FAERS Safety Report 7716683-4 (Version None)
Quarter: 2011Q3

REPORT INFORMATION
  Report Type: 
  Country: None (occurrence: None)
  Receive Date: 20110829
  Receipt Date: 20110822
  Transmission Date: 20111222
  Serious: Yes (Life-Threatening, Other)
  Sender: FDA-Public Use
  Company Number: CH-JNJFOC-20110804068

PATIENT
  Age: 58 Year
  Sex: Male

DRUGS (6)
  1. REMICADE [Suspect]
     Route: 042
     Dates: start: 20110601, end: 20110701
  2. FOLIC ACID [Concomitant]
     Indication: PSORIATIC ARTHROPATHY
     Route: 065
     Dates: start: 20070119, end: 20110712
  3. METHOTREXATE [Suspect]
     Indication: PSORIATIC ARTHROPATHY
     Route: 030
     Dates: start: 20070119, end: 20110712
  4. REMICADE [Suspect]
     Indication: PSORIATIC ARTHROPATHY
     Route: 042
     Dates: start: 20070119
  5. LODINE [Concomitant]
     Indication: PAIN
     Route: 048
     Dates: start: 20000101, end: 20110712
  6. OMEPRAZOLE [Concomitant]
     Indication: UNEVALUABLE EVENT
     Route: 048
     Dates: start: 20110324, end: 20110712

REACTIONS (1)
  - OESOPHAGEAL ADENOCARCINOMA [None]
